FAERS Safety Report 12536216 (Version 7)
Quarter: 2016Q3

REPORT INFORMATION
  Report Type: Report from Study
  Country: US (occurrence: US)
  Receive Date: 20160707
  Receipt Date: 20160803
  Transmission Date: 20161109
  Serious: Yes (Hospitalization, Other)
  Sender: FDA-Public Use
  Company Number: US-GLAXOSMITHKLINE-US2016GSK095919

PATIENT
  Sex: Female
  Weight: 68.27 kg

DRUGS (11)
  1. PROCARDIA [Concomitant]
     Active Substance: NIFEDIPINE
     Dosage: UNK
     Dates: start: 20160217, end: 20160220
  2. APRESOLINE HYDROCHLORIDE [Concomitant]
     Active Substance: HYDRALAZINE HYDROCHLORIDE
  3. COREG [Concomitant]
     Active Substance: CARVEDILOL
     Dosage: UNK
     Dates: start: 20151117
  4. FOLATE [Concomitant]
     Active Substance: FOLATE SODIUM
  5. LASIX [Concomitant]
     Active Substance: FUROSEMIDE
  6. POTASSIUM CHLORIDE. [Concomitant]
     Active Substance: POTASSIUM CHLORIDE
  7. PLAQUENIL [Concomitant]
     Active Substance: HYDROXYCHLOROQUINE SULFATE
  8. BELIMUMAB [Suspect]
     Active Substance: BELIMUMAB
     Indication: SYSTEMIC LUPUS ERYTHEMATOSUS
     Dosage: UNK UNK, U
     Route: 042
     Dates: start: 2013, end: 20150818
  9. ASPIRIN. [Concomitant]
     Active Substance: ASPIRIN
     Dosage: UNK
     Dates: end: 201509
  10. ISORDIL [Concomitant]
     Active Substance: ISOSORBIDE DINITRATE
  11. BETAMETHASONE. [Concomitant]
     Active Substance: BETAMETHASONE
     Dosage: UNK
     Dates: start: 20160217

REACTIONS (14)
  - Staphylococcal infection [Recovered/Resolved]
  - Limb mass [Unknown]
  - Fatigue [Unknown]
  - Hypercoagulation [Unknown]
  - Arteriosclerosis coronary artery [Unknown]
  - Urinary tract infection [Unknown]
  - Osteoporosis [Unknown]
  - Exposure during pregnancy [Unknown]
  - Breast feeding [Not Recovered/Not Resolved]
  - Live birth [Unknown]
  - Acne [Unknown]
  - Failed induction of labour [Recovered/Resolved]
  - Pre-eclampsia [Recovered/Resolved]
  - Cardiomegaly [Unknown]

NARRATIVE: CASE EVENT DATE: 20151007
